FAERS Safety Report 6810961-9 (Version None)
Quarter: 2010Q2

REPORT INFORMATION
  Report Type: 
  Country: None (occurrence: None)
  Receive Date: 20100630
  Receipt Date: 20081006
  Transmission Date: 20101027
  Serious: No
  Sender: FDA-Public Use
  Company Number: US-PFIZER INC-2008084039

PATIENT
  Sex: Female
  Weight: 70.909 kg

DRUGS (3)
  1. ESTRING [Suspect]
     Indication: ATROPHIC VULVOVAGINITIS
     Dates: start: 20081003, end: 20081004
  2. TOPROL-XL [Concomitant]
     Indication: MIGRAINE
  3. MAXALT [Concomitant]
     Indication: MIGRAINE

REACTIONS (4)
  - HEADACHE [None]
  - NAUSEA [None]
  - SOMNOLENCE [None]
  - VOMITING [None]
